FAERS Safety Report 7165648-2 (Version None)
Quarter: 2010Q4

REPORT INFORMATION
  Report Type: 
  Country: None (occurrence: None)
  Receive Date: 20101215
  Receipt Date: 20091230
  Transmission Date: 20110411
  Serious: No
  Sender: FDA-Public Use
  Company Number: US-AMGEN-KDL383079

PATIENT

DRUGS (3)
  1. ENBREL [Suspect]
     Indication: RHEUMATOID ARTHRITIS
     Dosage: 50 MG, QWK
     Route: 058
     Dates: start: 20080701
  2. METHOTREXATE [Concomitant]
     Dosage: UNK UNK, UNK
  3. HYDROXYCHLOROQUINE [Concomitant]
     Dosage: 600 MG, QOD

REACTIONS (3)
  - BRONCHITIS CHRONIC [None]
  - FATIGUE [None]
  - INSOMNIA [None]
